FAERS Safety Report 4960981-4 (Version None)
Quarter: 2006Q1

REPORT INFORMATION
  Report Type: 
  Country: None (occurrence: None)
  Receive Date: 20060130
  Receipt Date: 20050621
  Transmission Date: 20060701
  Serious: Yes (Other)
  Sender: FDA-Public Use
  Company Number: 142422USA

PATIENT
  Age: 52 Year
  Sex: Female
  Weight: 123.3784 kg

DRUGS (1)
  1. COPAXONE [Suspect]
     Indication: MULTIPLE SCLEROSIS
     Dates: start: 20010726, end: 20040101

REACTIONS (1)
  - INJECTION SITE ABSCESS [None]
